FAERS Safety Report 11991991 (Version 1)
Quarter: 2016Q1

REPORT INFORMATION
  Report Type: Spontaneous
  Country: US (occurrence: US)
  Receive Date: 20160203
  Receipt Date: 20160203
  Transmission Date: 20160526
  Serious: No
  Sender: FDA-Public Use
  Company Number: US-JNJFOC-20160102967

PATIENT
  Age: 63 Year
  Sex: Female
  Weight: 81.65 kg

DRUGS (5)
  1. ZYRTEC [Suspect]
     Active Substance: CETIRIZINE HYDROCHLORIDE
     Indication: SKIN REACTION
     Dosage: 1 PILL, 1 TIME PER DAY
     Route: 048
     Dates: start: 20160103
  2. ZYRTEC [Suspect]
     Active Substance: CETIRIZINE HYDROCHLORIDE
     Indication: SWELLING
     Dosage: 1 PILL, 1 TIME PER DAY
     Route: 048
     Dates: start: 20160103
  3. ZYRTEC [Suspect]
     Active Substance: CETIRIZINE HYDROCHLORIDE
     Indication: URTICARIA
     Dosage: 1 PILL, 1 TIME PER DAY
     Route: 048
     Dates: start: 20160103
  4. ZYRTEC [Suspect]
     Active Substance: CETIRIZINE HYDROCHLORIDE
     Indication: PRURITUS
     Dosage: 1 PILL, 1 TIME PER DAY
     Route: 048
     Dates: start: 20160103
  5. ZYRTEC [Suspect]
     Active Substance: CETIRIZINE HYDROCHLORIDE
     Indication: ERYTHEMA
     Dosage: 1 PILL, 1 TIME PER DAY
     Route: 048
     Dates: start: 20160103

REACTIONS (2)
  - Product use issue [Unknown]
  - Off label use [Unknown]
